FAERS Safety Report 5841142-3 (Version None)
Quarter: 2008Q3

REPORT INFORMATION
  Report Type: 
  Country: None (occurrence: None)
  Receive Date: 20080807
  Receipt Date: 20080807
  Transmission Date: 20090109
  Serious: No
  Sender: FDA-Public Use
  Company Number: None

PATIENT
  Age: 4 Year
  Sex: Male
  Weight: 19.7315 kg

DRUGS (1)
  1. SINGULAIR [Suspect]
     Indication: RHINITIS
     Dates: start: 20071101, end: 20080301

REACTIONS (6)
  - ACTIVITIES OF DAILY LIVING IMPAIRED [None]
  - EMOTIONAL DISORDER [None]
  - FATIGUE [None]
  - HEADACHE [None]
  - MOOD SWINGS [None]
  - PAIN IN EXTREMITY [None]
